FAERS Safety Report 24029384 (Version 3)
Quarter: 2024Q4

REPORT INFORMATION
  Report Type: Report from Study
  Country: US (occurrence: US)
  Receive Date: 20240628
  Receipt Date: 20241221
  Transmission Date: 20250114
  Serious: Yes (Hospitalization, Other)
  Sender: ABBVIE
  Company Number: US-ABBVIE-5814707

PATIENT
  Age: 64 Year
  Sex: Female

DRUGS (4)
  1. SKYRIZI [Suspect]
     Active Substance: RISANKIZUMAB-RZAA
     Indication: Psoriatic arthropathy
     Dosage: STRENGTH: 150  MG/ML, AT WEEK 16
     Route: 058
     Dates: start: 20240617, end: 20240617
  2. SKYRIZI [Suspect]
     Active Substance: RISANKIZUMAB-RZAA
     Dosage: STRENGTH: 150  MG/ML, AT WEEK 0
     Route: 058
     Dates: start: 20240225, end: 20240225
  3. SKYRIZI [Suspect]
     Active Substance: RISANKIZUMAB-RZAA
     Dosage: STRENGTH: 150  MG/ML, AT WEEK 4
     Route: 058
     Dates: start: 20240324, end: 20240324
  4. SKYRIZI [Suspect]
     Active Substance: RISANKIZUMAB-RZAA
     Dosage: STRENGTH: 150 MG/ML, AT WEEK 40
     Route: 058
     Dates: start: 20241211

REACTIONS (7)
  - Hip arthroplasty [Unknown]
  - Device dislocation [Unknown]
  - Skin lesion [Recovered/Resolved]
  - Arthropathy [Recovered/Resolved]
  - Pain in extremity [Unknown]
  - Paraesthesia [Unknown]
  - Bursitis [Unknown]

NARRATIVE: CASE EVENT DATE: 20240101
